FAERS Safety Report 13034338 (Version 3)
Quarter: 2017Q1

REPORT INFORMATION
  Report Type: Report from Study
  Country: US (occurrence: US)
  Receive Date: 20161216
  Receipt Date: 20170131
  Transmission Date: 20170428
  Serious: Yes (Hospitalization, Disabling)
  Sender: FDA-Public Use
  Company Number: US-JNJFOC-20161210996

PATIENT
  Age: 16 Year
  Sex: Female
  Weight: 45.6 kg

DRUGS (15)
  1. HUMIRA [Concomitant]
     Active Substance: ADALIMUMAB
     Route: 065
     Dates: start: 20140110
  2. MONTELUKAST [Concomitant]
     Active Substance: MONTELUKAST SODIUM
     Route: 065
  3. LISDEXAMFETAMINE DIMESYLATE [Concomitant]
     Active Substance: LISDEXAMFETAMINE DIMESYLATE
     Route: 065
  4. REMICADE [Suspect]
     Active Substance: INFLIXIMAB
     Indication: INFLAMMATORY BOWEL DISEASE
     Route: 042
     Dates: start: 20111021
  5. METRONIDAZOLE. [Concomitant]
     Active Substance: METRONIDAZOLE
     Route: 065
  6. VITAMIN D [Concomitant]
     Active Substance: CHOLECALCIFEROL
     Route: 065
  7. FLUTICASONE PROPIONATE. [Concomitant]
     Active Substance: FLUTICASONE PROPIONATE
     Route: 065
  8. IRON SUCROSE [Concomitant]
     Active Substance: IRON SUCROSE
     Route: 065
  9. REMICADE [Suspect]
     Active Substance: INFLIXIMAB
     Indication: INFLAMMATORY BOWEL DISEASE
     Route: 042
     Dates: start: 20130830
  10. POLYETHYLENE GLYCOL [Concomitant]
     Active Substance: POLYETHYLENE GLYCOLS
     Route: 065
  11. ALBUTEROL. [Concomitant]
     Active Substance: ALBUTEROL
     Route: 065
  12. METHOTREXATE. [Concomitant]
     Active Substance: METHOTREXATE
     Route: 065
  13. CYPROHEPTADINE. [Concomitant]
     Active Substance: CYPROHEPTADINE
     Route: 065
  14. HUMIRA [Concomitant]
     Active Substance: ADALIMUMAB
     Route: 065
  15. HUMIRA [Concomitant]
     Active Substance: ADALIMUMAB
     Route: 065
     Dates: start: 20161111

REACTIONS (1)
  - Crohn^s disease [Recovered/Resolved]

NARRATIVE: CASE EVENT DATE: 20160817
